FAERS Safety Report 5290191-5 (Version None)
Quarter: 2007Q2

REPORT INFORMATION
  Report Type: 
  Country: None (occurrence: None)
  Receive Date: 20070402
  Receipt Date: 20070321
  Transmission Date: 20071010
  Serious: Yes (Hospitalization, Other)
  Sender: FDA-Public Use
  Company Number: 2007SP005364

PATIENT
  Age: 54 Year
  Sex: Male
  Weight: 92.5338 kg

DRUGS (2)
  1. PEG-INTRON [Suspect]
     Indication: HEPATITIS C
     Dosage: SC
     Route: 058
     Dates: start: 20070209, end: 20070304
  2. RIBAVIRIN [Suspect]
     Indication: HEPATITIS C
     Dosage: PO
     Route: 048
     Dates: start: 20070209, end: 20070304

REACTIONS (7)
  - ANKLE FRACTURE [None]
  - ANOREXIA [None]
  - ASTHENIA [None]
  - DYSGEUSIA [None]
  - INFLUENZA LIKE ILLNESS [None]
  - VOMITING [None]
  - WEIGHT DECREASED [None]
